FAERS Safety Report 6783511-3 (Version None)
Quarter: 2010Q2

REPORT INFORMATION
  Report Type: 
  Country: None (occurrence: None)
  Receive Date: 20100622
  Receipt Date: 20100615
  Transmission Date: 20101027
  Serious: Yes (Death)
  Sender: FDA-Public Use
  Company Number: PHHY2010US39626

PATIENT

DRUGS (2)
  1. EVEROLIMUS [Suspect]
     Indication: CARCINOID TUMOUR OF THE STOMACH
     Dosage: 10 MG DAILY
     Route: 048
  2. SORAFENIB [Suspect]
     Indication: CARCINOID TUMOUR OF THE STOMACH
     Dosage: 200 MG, BID
     Route: 048

REACTIONS (1)
  - GASTRIC PERFORATION [None]
